FAERS Safety Report 5542478-6 (Version None)
Quarter: 2007Q4

REPORT INFORMATION
  Report Type: 
  Country: None (occurrence: None)
  Receive Date: 20071129
  Receipt Date: 20070424
  Transmission Date: 20080405
  Serious: Yes (Other)
  Sender: FDA-Public Use
  Company Number: US200703004663

PATIENT
  Age: 62 Year
  Sex: Female
  Weight: 66.2 kg

DRUGS (4)
  1. ZYPREXA [Suspect]
     Indication: PSYCHOTIC DISORDER
     Dosage: 5 MG, 2/D, ORAL  : 10 MG, EACH EVENING, ORAL
     Route: 048
     Dates: start: 20060801, end: 20070401
  2. ZYPREXA [Suspect]
     Indication: PSYCHOTIC DISORDER
     Dosage: 5 MG, 2/D, ORAL  : 10 MG, EACH EVENING, ORAL
     Route: 048
     Dates: start: 20060801, end: 20070401
  3. ABILIFY [Concomitant]
  4. TRAZODONE HCL [Concomitant]

REACTIONS (5)
  - FALL [None]
  - FOOD CRAVING [None]
  - GINGIVITIS [None]
  - HUNGER [None]
  - WEIGHT INCREASED [None]
